FAERS Safety Report 21573127 (Version 17)
Quarter: 2023Q4

REPORT INFORMATION
  Report Type: Spontaneous
  Country: PT (occurrence: PT)
  Receive Date: 20221109
  Receipt Date: 20231026
  Transmission Date: 20240110
  Serious: Yes (Life-Threatening, Hospitalization, Congenital Anomaly, Other)
  Sender: FDA-Public Use
  Company Number: PT-MYLANLABS-2022M1118627

PATIENT
  Age: 49 Year
  Sex: Male

DRUGS (9)
  1. METHYLPHENIDATE HYDROCHLORIDE [Interacting]
     Active Substance: METHYLPHENIDATE HYDROCHLORIDE
     Indication: Attention deficit hyperactivity disorder
     Dosage: UNK
     Route: 065
  2. METHYLPHENIDATE HYDROCHLORIDE [Interacting]
     Active Substance: METHYLPHENIDATE HYDROCHLORIDE
     Indication: Depression
  3. ONDANSETRON [Interacting]
     Active Substance: ONDANSETRON
     Indication: General anaesthesia
     Dosage: UNK
     Route: 065
  4. FENTANYL CITRATE [Interacting]
     Active Substance: FENTANYL CITRATE
     Indication: General anaesthesia
     Dosage: UNK
     Route: 040
  5. FENTANYL CITRATE [Interacting]
     Active Substance: FENTANYL CITRATE
     Indication: Spinal fusion surgery
     Dosage: UNK
     Route: 041
  6. FENTANYL CITRATE [Interacting]
     Active Substance: FENTANYL CITRATE
     Indication: Attention deficit hyperactivity disorder
  7. TRAZODONE [Interacting]
     Active Substance: TRAZODONE HYDROCHLORIDE
     Indication: Depression
     Dosage: UNK
     Route: 065
  8. TRAZODONE [Interacting]
     Active Substance: TRAZODONE HYDROCHLORIDE
     Indication: Attention deficit hyperactivity disorder
  9. TRAZODONE [Interacting]
     Active Substance: TRAZODONE HYDROCHLORIDE
     Indication: Spinal fusion surgery

REACTIONS (11)
  - Binocular eye movement disorder [Recovered/Resolved]
  - Serotonin syndrome [Recovered/Resolved]
  - Mental status changes [Recovered/Resolved]
  - Unresponsive to stimuli [Recovered/Resolved]
  - Drug interaction [Recovered/Resolved]
  - Hypertension [Recovered/Resolved]
  - Tachycardia [Recovered/Resolved]
  - Hyperthermia [Recovered/Resolved]
  - Akathisia [Recovered/Resolved]
  - Hyperkinesia [Recovered/Resolved]
  - Agitation [Recovered/Resolved]
